FAERS Safety Report 4412105-X (Version None)
Quarter: 2004Q3

REPORT INFORMATION
  Report Type: 
  Country: None (occurrence: None)
  Receive Date: 20040730
  Receipt Date: 20040720
  Transmission Date: 20050211
  Serious: Yes (Life-Threatening, Hospitalization)
  Sender: FDA-Public Use
  Company Number: FR-GLAXOSMITHKLINE-B0339561A

PATIENT
  Age: 39 Year
  Sex: Male

DRUGS (4)
  1. ZINNAT [Suspect]
     Indication: NASOPHARYNGITIS
     Dosage: 1UNIT SINGLE DOSE
     Route: 048
     Dates: start: 20040702, end: 20040702
  2. AERIUS [Suspect]
     Indication: NASOPHARYNGITIS
     Dosage: 1UNIT SINGLE DOSE
     Route: 048
     Dates: start: 20040702, end: 20040702
  3. FORADIL [Concomitant]
     Indication: ILL-DEFINED DISORDER
     Route: 065
  4. BECLOMETHASONE DIPROPIONATE [Concomitant]
     Indication: ASTHMA
     Route: 065

REACTIONS (9)
  - ANAPHYLACTIC SHOCK [None]
  - BRONCHOSPASM [None]
  - HYPOTENSION [None]
  - MALAISE [None]
  - PAINFUL RESPIRATION [None]
  - PRURIGO [None]
  - PRURITUS [None]
  - SKIN DISCOLOURATION [None]
  - URTICARIA GENERALISED [None]
